FAERS Safety Report 14264731 (Version 2)
Quarter: 2021Q3

REPORT INFORMATION
  Report Type: Spontaneous
  Country: NL (occurrence: FR)
  Receive Date: 20171208
  Receipt Date: 20210812
  Transmission Date: 20211014
  Serious: Yes (Other)
  Sender: FDA-Public Use
  Company Number: FR-FRESENIUS KABI-FK201710346

PATIENT
  Sex: Female

DRUGS (36)
  1. DEXAMETHASONE. [Suspect]
     Active Substance: DEXAMETHASONE
     Dosage: 42 MG
     Route: 048
     Dates: start: 20170909, end: 20171015
  2. MERCAPTOPURINE. [Suspect]
     Active Substance: MERCAPTOPURINE
     Indication: PRODUCT USED FOR UNKNOWN INDICATION
     Dosage: DOSAGE FORM: UNSPECIFIED
     Route: 065
  3. METHOTREXATE. [Suspect]
     Active Substance: METHOTREXATE
     Dosage: 10 MG
     Route: 037
  4. PEGASPARGASE [Suspect]
     Active Substance: PEGASPARGASE
     Dosage: 1350 IU, UNK
     Route: 065
     Dates: start: 20170526, end: 20170526
  5. VINCRISTINE [Suspect]
     Active Substance: VINCRISTINE
     Dosage: 0.8 MG, UNK
     Route: 065
     Dates: start: 20170704, end: 20170704
  6. DOXORUBICIN [Suspect]
     Active Substance: DOXORUBICIN
     Dosage: 14 MG, UNK
     Route: 042
     Dates: start: 20170530, end: 20170530
  7. CYTARABINE. [Suspect]
     Active Substance: CYTARABINE
     Indication: ACUTE LYMPHOCYTIC LEUKAEMIA
     Dosage: 25 MG
     Route: 037
     Dates: start: 201705, end: 201705
  8. HYDROCORTISONE. [Suspect]
     Active Substance: HYDROCORTISONE
     Indication: ACUTE LYMPHOCYTIC LEUKAEMIA
     Dosage: 15 MG, QD 1X/DAY
     Route: 037
     Dates: start: 20170928, end: 20170928
  9. METHOTREXATE. [Suspect]
     Active Substance: METHOTREXATE
     Dosage: 10 MG
     Route: 037
  10. DOXORUBICIN [Suspect]
     Active Substance: DOXORUBICIN
     Indication: ACUTE LYMPHOCYTIC LEUKAEMIA
     Route: 065
     Dates: start: 20170530, end: 20170530
  11. CYTARABINE. [Suspect]
     Active Substance: CYTARABINE
     Dosage: 30 MG
     Route: 037
     Dates: start: 2017, end: 2017
  12. DEXAMETHASONE. [Suspect]
     Active Substance: DEXAMETHASONE
     Indication: ACUTE LYMPHOCYTIC LEUKAEMIA
     Dosage: UNK
     Route: 065
     Dates: start: 20170925, end: 20171015
  13. CYTARABINE (MANUFACTURER UNKNOWN) [Suspect]
     Active Substance: CYTARABINE
     Indication: ACUTE LYMPHOCYTIC LEUKAEMIA
     Dosage: 30 MG, UNK
     Route: 037
     Dates: start: 20170928, end: 20170928
  14. METHOTREXATE. [Suspect]
     Active Substance: METHOTREXATE
     Indication: ACUTE LYMPHOCYTIC LEUKAEMIA
     Dosage: 12 MG
     Route: 037
  15. PEGASPARGASE [Suspect]
     Active Substance: PEGASPARGASE
     Dosage: 1350 IU, UNK
     Route: 065
     Dates: start: 20170704, end: 20170704
  16. VINCRISTINE [Suspect]
     Active Substance: VINCRISTINE
     Indication: ACUTE LYMPHOCYTIC LEUKAEMIA
     Dosage: 0.88 MG, QD, 1X/DAY
     Route: 065
     Dates: start: 20170925, end: 20171009
  17. VINCRISTINE [Suspect]
     Active Substance: VINCRISTINE
     Dosage: 0.8 MG, UNK
     Route: 065
     Dates: start: 20170711, end: 20170711
  18. MERCAPTOPURINE. [Suspect]
     Active Substance: MERCAPTOPURINE
     Indication: ACUTE LYMPHOCYTIC LEUKAEMIA
     Dosage: UNK
     Route: 065
  19. DOXORUBICIN [Suspect]
     Active Substance: DOXORUBICIN
     Dosage: 13.2 MG
     Route: 065
     Dates: start: 20170523, end: 20170523
  20. DEXAMETHASONE. [Suspect]
     Active Substance: DEXAMETHASONE
     Dosage: 42 MG
     Route: 065
  21. CYTARABINE (MANUFACTURER UNKNOWN) [Suspect]
     Active Substance: CYTARABINE
     Dosage: UNK
     Route: 037
     Dates: start: 20170503, end: 20171027
  22. METHOTREXATE. [Suspect]
     Active Substance: METHOTREXATE
     Dosage: 12 MG
     Route: 037
  23. CYCLOPHOSPHAMIDE. [Suspect]
     Active Substance: CYCLOPHOSPHAMIDE
     Indication: ACUTE LYMPHOCYTIC LEUKAEMIA
     Dosage: 540 MG, UNK
     Route: 065
     Dates: start: 20170620, end: 20170620
  24. METHOTREXATE. [Suspect]
     Active Substance: METHOTREXATE
     Dosage: UNK
     Route: 037
     Dates: start: 20161107, end: 20171027
  25. VINCRISTINE [Suspect]
     Active Substance: VINCRISTINE
     Dosage: 0.8 MG, UNK
     Route: 065
     Dates: start: 20170606, end: 20170606
  26. VINCRISTINE [Suspect]
     Active Substance: VINCRISTINE
     Dosage: 0.8 MG, UNK
     Route: 065
     Dates: start: 20170530, end: 20170530
  27. DOXORUBICIN [Suspect]
     Active Substance: DOXORUBICIN
     Dosage: 14.4 MG, UNK
     Route: 065
     Dates: start: 20170925, end: 20171009
  28. DOXORUBICIN [Suspect]
     Active Substance: DOXORUBICIN
     Dosage: 14 MG, UNK
     Route: 042
     Dates: start: 20171009, end: 20171009
  29. CYTARABINE. [Suspect]
     Active Substance: CYTARABINE
     Dosage: 30 MG
     Route: 037
     Dates: start: 20170928, end: 20170928
  30. DEXAMETHASONE. [Suspect]
     Active Substance: DEXAMETHASONE
     Dosage: 5 MG
     Route: 048
     Dates: start: 20161112, end: 20171016
  31. HYDROCORTISONE. [Suspect]
     Active Substance: HYDROCORTISONE
     Dosage: 15 MG
     Route: 037
     Dates: start: 20170303, end: 20171027
  32. METHOTREXATE. [Suspect]
     Active Substance: METHOTREXATE
     Dosage: 10 MG
     Route: 037
     Dates: start: 201705, end: 201705
  33. DOXORUBICIN [Suspect]
     Active Substance: DOXORUBICIN
     Dosage: 13.2 MG
     Route: 065
     Dates: start: 20170606, end: 20170606
  34. PEGASPARGASE [Suspect]
     Active Substance: PEGASPARGASE
     Indication: ACUTE LYMPHOCYTIC LEUKAEMIA
     Dosage: 1425 IU, 1X/DAY:QD
     Route: 042
     Dates: start: 20170928, end: 20170928
  35. VINCRISTINE [Suspect]
     Active Substance: VINCRISTINE
     Dosage: 0.8 MG, UNK
     Route: 065
     Dates: start: 20170523, end: 20170523
  36. CYTARABINE. [Suspect]
     Active Substance: CYTARABINE
     Dosage: 25 MG
     Route: 037

REACTIONS (1)
  - Hyperlipidaemia [Not Recovered/Not Resolved]

NARRATIVE: CASE EVENT DATE: 20171019
